FAERS Safety Report 4745676-4 (Version None)
Quarter: 2005Q3

REPORT INFORMATION
  Report Type: 
  Country: None (occurrence: None)
  Receive Date: 20050816
  Receipt Date: 20050112
  Transmission Date: 20060218
  Serious: Yes (Death, Hospitalization)
  Sender: FDA-Public Use
  Company Number: US-BOEHRINGER INGELHEIM PHARMMACEUTICALS, INC.-2005-BP-00453BP

PATIENT
  Age: 68 Year
  Sex: Female
  Weight: 87.1 kg

DRUGS (11)
  1. SPIRIVA [Suspect]
     Indication: CHRONIC OBSTRUCTIVE PULMONARY DISEASE
     Route: 055
     Dates: start: 20040618, end: 20050106
  2. ZOCOR [Concomitant]
  3. CELEXA [Concomitant]
  4. XANAX [Concomitant]
  5. ADVAIR DISKUS 100/50 [Concomitant]
     Route: 055
  6. ALBUTEROL [Concomitant]
  7. LASIX [Concomitant]
  8. LEVAQUIN [Concomitant]
  9. PREDNISONE [Concomitant]
  10. OXYGEN [Concomitant]
  11. ATROVENT [Concomitant]
     Route: 055

REACTIONS (5)
  - CARDIO-RESPIRATORY ARREST [None]
  - METABOLIC ACIDOSIS [None]
  - PHARMACEUTICAL PRODUCT COMPLAINT [None]
  - RENAL TUBULAR NECROSIS [None]
  - SHOCK [None]
